FAERS Safety Report 8329107-3 (Version None)
Quarter: 2012Q2

REPORT INFORMATION
  Report Type: 
  Country: None (occurrence: None)
  Receive Date: 20120502
  Receipt Date: 20101011
  Transmission Date: 20120825
  Serious: No
  Sender: FDA-Public Use
  Company Number: US-TEVA-2010005375

PATIENT
  Sex: Female
  Weight: 72.64 kg

DRUGS (4)
  1. ALLERGY SHOTS [Suspect]
  2. MULTI-VITAMINS [Concomitant]
  3. NUVIGIL [Suspect]
     Indication: HYPERSOMNIA
     Dosage: 50 MILLIGRAM;
     Route: 048
     Dates: start: 20100825, end: 20100907
  4. NUVIGIL [Suspect]
     Dosage: 150 MILLIGRAM;
     Route: 048
     Dates: start: 20100908

REACTIONS (5)
  - FEELING ABNORMAL [None]
  - HEADACHE [None]
  - GASTROOESOPHAGEAL REFLUX DISEASE [None]
  - PAIN [None]
  - DRUG INEFFECTIVE FOR UNAPPROVED INDICATION [None]
